FAERS Safety Report 7074357-X (Version None)
Quarter: 2010Q4

REPORT INFORMATION
  Report Type: 
  Country: None (occurrence: None)
  Receive Date: 20101029
  Receipt Date: 20101018
  Transmission Date: 20110411
  Serious: Yes (Other)
  Sender: FDA-Public Use
  Company Number: US-US-EMD SERONO, INC.-7022851

PATIENT
  Sex: Female
  Weight: 91 kg

DRUGS (3)
  1. REBIF [Suspect]
     Indication: MULTIPLE SCLEROSIS
     Route: 058
     Dates: start: 20100923, end: 20101018
  2. SYNTHROID [Concomitant]
     Indication: HYPOTHYROIDISM
  3. ADVIL [Concomitant]
     Indication: PAIN

REACTIONS (2)
  - OPTIC NEURITIS [None]
  - STRESS [None]
